FAERS Safety Report 6186512-1 (Version None)
Quarter: 2009Q2

REPORT INFORMATION
  Report Type: 
  Country: None (occurrence: None)
  Receive Date: 20090512
  Receipt Date: 20090505
  Transmission Date: 20091009
  Serious: Yes (Other)
  Sender: FDA-Public Use
  Company Number: US-JNJFOC-20090501699

PATIENT
  Age: 31 Year
  Sex: Female

DRUGS (4)
  1. TOPIRAMATE [Suspect]
     Dosage: ON 7/O
     Route: 048
  2. TOPIRAMATE [Suspect]
     Indication: EPILEPSY
     Route: 048
  3. ZONISAMIDE [Concomitant]
     Indication: EPILEPSY
     Route: 065
  4. LAMICTAL [Concomitant]
     Indication: EPILEPSY
     Route: 065

REACTIONS (4)
  - ABORTION SPONTANEOUS [None]
  - CONVULSION [None]
  - DRUG EXPOSURE DURING PREGNANCY [None]
  - MUSCLE SPASMS [None]
